FAERS Safety Report 6996874-0 (Version None)
Quarter: 2010Q3

REPORT INFORMATION
  Report Type: 
  Country: None (occurrence: None)
  Receive Date: 20100918
  Receipt Date: 20090803
  Transmission Date: 20110219
  Serious: No
  Sender: FDA-Public Use
  Company Number: US-WYE-H10438909

PATIENT
  Sex: Female
  Weight: 45.85 kg

DRUGS (6)
  1. EFFEXOR XR [Suspect]
     Indication: DEPRESSION
     Dosage: UNKNOWN
     Dates: start: 20080701, end: 20090101
  2. EFFEXOR XR [Suspect]
     Dosage: 225 MG - FREQUENCY UNSPECIFIED
     Dates: start: 20090101, end: 20090701
  3. MELATONIN [Concomitant]
  4. GINKGO BILOBA [Concomitant]
  5. CALCIUM PHOSPHATE/CALCIUM SODIUM LACTATE/ERGOCALCIFEROL [Concomitant]
  6. BIOTIN [Concomitant]

REACTIONS (3)
  - ARTHROPATHY [None]
  - JOINT SWELLING [None]
  - TENOSYNOVITIS [None]
